FAERS Safety Report 19951935 (Version 1)
Quarter: 2021Q4

REPORT INFORMATION
  Report Type: Spontaneous
  Country: GR (occurrence: GR)
  Receive Date: 20211013
  Receipt Date: 20211013
  Transmission Date: 20220303
  Serious: Yes (Other)
  Sender: FDA-Public Use
  Company Number: None

PATIENT
  Age: 58 Year
  Sex: Female
  Weight: 45 kg

DRUGS (3)
  1. ROSUVASTATIN [Suspect]
     Active Substance: ROSUVASTATIN
     Indication: Hyperlipidaemia
     Dosage: 40 MILLIGRAM, 1X1
     Dates: start: 20201201, end: 20210331
  2. METOPROLOL TARTRATE [Concomitant]
     Active Substance: METOPROLOL TARTRATE
     Indication: Coronary artery disease
     Dosage: 100 MILLIGRAM, 1/4 X 1
     Dates: start: 20160601
  3. ATORVASTATIN [Concomitant]
     Active Substance: ATORVASTATIN
     Dosage: UNK
     Dates: start: 2017, end: 20201201

REACTIONS (1)
  - Albumin urine present [Not Recovered/Not Resolved]

NARRATIVE: CASE EVENT DATE: 20210401
